FAERS Safety Report 5997011-1 (Version None)
Quarter: 2008Q4

REPORT INFORMATION
  Report Type: 
  Country: None (occurrence: None)
  Receive Date: 20081212
  Receipt Date: 20081031
  Transmission Date: 20090506
  Serious: No
  Sender: FDA-Public Use
  Company Number: US-ABBOTT-08P-163-0485064-00

PATIENT
  Sex: Male
  Weight: 83.309 kg

DRUGS (10)
  1. HUMIRA [Suspect]
     Indication: OSTEOARTHRITIS
     Route: 058
     Dates: start: 20080101, end: 20080301
  2. HUMIRA [Suspect]
     Indication: CROHN'S DISEASE
  3. WARFARIN SODIUM [Concomitant]
     Indication: CARDIAC DISORDER
     Route: 048
  4. FUROSEMIDE [Concomitant]
     Indication: CARDIAC DISORDER
     Route: 048
  5. DOXEPIN HCL [Concomitant]
     Indication: DEPRESSION
     Route: 048
  6. DOXEPIN HCL [Concomitant]
     Indication: INSOMNIA
  7. AMIODARONE HCL [Concomitant]
     Indication: CARDIAC DISORDER
     Route: 048
  8. MELOXICAM [Concomitant]
     Indication: OSTEOARTHRITIS
     Route: 048
  9. PREDNISONE TAB [Concomitant]
     Indication: OSTEOARTHRITIS
     Route: 048
  10. SIMVASTATIN [Concomitant]
     Indication: BLOOD CHOLESTEROL
     Route: 048

REACTIONS (3)
  - ABASIA [None]
  - ILLUSION [None]
  - INCOHERENT [None]
